FAERS Safety Report 9073231 (Version 1)
Quarter: 2013Q1

REPORT INFORMATION
  Report Type: Spontaneous
  Country: US (occurrence: US)
  Receive Date: 20130129
  Receipt Date: 20130129
  Transmission Date: 20140127
  Serious: No
  Sender: FDA-Public Use
  Company Number: US-ABBOTT-12P-163-0929448-00

PATIENT
  Sex: Female
  Weight: 52.21 kg

DRUGS (11)
  1. HUMIRA 40 MG/0.8 ML PEN [Suspect]
     Indication: RHEUMATOID ARTHRITIS
     Route: 058
     Dates: start: 2011
  2. ALBUTEROL [Concomitant]
     Indication: CHEST DISCOMFORT
  3. AMITRIPTYLINE [Concomitant]
     Indication: INSOMNIA
  4. ADDERALL [Concomitant]
     Indication: ATTENTION DEFICIT/HYPERACTIVITY DISORDER
  5. VITAMIN D [Concomitant]
     Indication: VITAMIN SUPPLEMENTATION
  6. FOLIC ACID [Concomitant]
     Indication: VITAMIN SUPPLEMENTATION
  7. FOLIC ACID [Concomitant]
     Indication: DRUG THERAPY
  8. METHOTREXATE [Concomitant]
     Indication: RHEUMATOID ARTHRITIS
  9. IBUPROFEN [Concomitant]
     Indication: BACK PAIN
  10. LIDODERM PATCH [Concomitant]
     Indication: BACK PAIN
  11. DETROL [Concomitant]
     Indication: BLADDER DISORDER

REACTIONS (2)
  - Injection site pain [Not Recovered/Not Resolved]
  - Cataract [Not Recovered/Not Resolved]
